FAERS Safety Report 11913317 (Version 1)
Quarter: 2016Q1

REPORT INFORMATION
  Report Type: Spontaneous
  Country: CA (occurrence: CA)
  Receive Date: 20160113
  Receipt Date: 20160113
  Transmission Date: 20160526
  Serious: Yes (Disabling)
  Sender: FDA-Public Use
  Company Number: CA-TEVA-624772ACC

PATIENT
  Age: 81 Year
  Sex: Female

DRUGS (2)
  1. AMLODIPINE [Suspect]
     Active Substance: AMLODIPINE BESYLATE
     Indication: HYPOTHYROIDISM
     Dosage: 5 MILLIGRAM DAILY;
     Route: 048
  2. ELTROXIN TAB 50MCG [Suspect]
     Active Substance: LEVOTHYROXINE
     Indication: ATRIAL FIBRILLATION
     Dosage: 50 MICROGRAM DAILY;
     Route: 048

REACTIONS (9)
  - Blood pressure fluctuation [Recovering/Resolving]
  - Muscle spasms [Recovering/Resolving]
  - Dizziness [Recovering/Resolving]
  - Eye pain [Recovering/Resolving]
  - Drug ineffective [Recovering/Resolving]
  - Heart rate irregular [Recovering/Resolving]
  - Product substitution issue [Recovering/Resolving]
  - Headache [Recovering/Resolving]
  - Malaise [Recovering/Resolving]
